FAERS Safety Report 7716429-X (Version None)
Quarter: 2011Q3

REPORT INFORMATION
  Report Type: 
  Country: None (occurrence: None)
  Receive Date: 20110829
  Receipt Date: 20110822
  Transmission Date: 20111222
  Serious: Yes (Life-Threatening, Hospitalization, Disabling, Other)
  Sender: FDA-Public Use
  Company Number: PHFR2011GB04994

PATIENT
  Age: 63 Year
  Weight: 64 kg

DRUGS (15)
  1. ATENOLOL [Concomitant]
     Indication: HYPERTENSION
     Dosage: 50 MG/DAY
     Route: 048
  2. HYOSCINE [Concomitant]
  3. KLIOVANCE [Concomitant]
     Dosage: 1 DF, QD
     Dates: end: 20110424
  4. ACETAMINOPHEN [Concomitant]
     Dosage: 1 G, QID
     Route: 048
  5. DOTHIEPIN HYDROCHLORIDE [Concomitant]
     Indication: DEPRESSION
     Dosage: 75 MG/DAY
     Route: 048
  6. MOXONIDINE [Concomitant]
     Indication: HYPERTENSION
     Dosage: 200 UG/DAY
     Route: 048
  7. LEVOTHYROXINE SODIUM [Concomitant]
  8. LEVETIRACETAM [Concomitant]
     Dosage: 250 MG/DAY
     Route: 048
  9. CLARITHROMYCIN [Interacting]
     Indication: PNEUMONIA
     Dosage: 500 MG, BID
     Dates: start: 20110423, end: 20110428
  10. CYCLOSPORINE [Interacting]
     Indication: RENAL TRANSPLANT
     Dosage: 75 MG, BID
     Route: 048
     Dates: end: 20110426
  11. METRONIDAZOLE [Concomitant]
     Indication: GASTROINTESTINAL INFECTION
     Dosage: 400 MG/DAY
     Route: 042
     Dates: start: 20110423, end: 20110424
  12. PIPERACILLIN AND TAZOBACTAM [Concomitant]
     Indication: PNEUMONIA
     Dosage: 4.5 MG/DAY
     Route: 042
     Dates: start: 20110424, end: 20110425
  13. COLCHICINE [Suspect]
     Indication: GOUT
     Dosage: 500 UG, BID
     Route: 048
     Dates: start: 20110224, end: 20110424
  14. ALLOPURINOL [Concomitant]
     Indication: GOUT
     Dosage: 100 MG, BID
     Route: 048
  15. AUGMENTIN '125' [Concomitant]
     Dosage: 1.2 G TOTAL
     Route: 042
     Dates: start: 20110423, end: 20110423

REACTIONS (17)
  - RENAL FAILURE ACUTE [None]
  - NAUSEA [None]
  - BLOOD CREATINE PHOSPHOKINASE INCREASED [None]
  - GOUT [None]
  - VOMITING [None]
  - DIARRHOEA [None]
  - DRUG INTERACTION [None]
  - METABOLIC ACIDOSIS [None]
  - BLOOD CALCIUM DECREASED [None]
  - GUILLAIN-BARRE SYNDROME [None]
  - ASTHENIA [None]
  - PNEUMONIA [None]
  - PANCYTOPENIA [None]
  - QUADRIPARESIS [None]
  - PERIPHERAL MOTOR NEUROPATHY [None]
  - MALAISE [None]
  - HYPOTONIA [None]
